FAERS Safety Report 11882948 (Version 2)
Quarter: 2016Q1

REPORT INFORMATION
  Report Type: Other
  Country: FR (occurrence: FR)
  Receive Date: 20151231
  Receipt Date: 20160128
  Transmission Date: 20160526
  Serious: Yes (Hospitalization)
  Sender: FDA-Public Use
  Company Number: FR-SYMPLMED PHARMACEUTICALS-2015SYMPLMED000106

PATIENT

DRUGS (7)
  1. CRESTOR [Suspect]
     Active Substance: ROSUVASTATIN CALCIUM
     Indication: PRODUCT USED FOR UNKNOWN INDICATION
     Dosage: 30 (5MG) DF, SINGLE DOSE
     Route: 048
     Dates: start: 20151112, end: 20151112
  2. COVERAM [Suspect]
     Active Substance: AMLODIPINE\PERINDOPRIL
     Indication: PRODUCT USED FOR UNKNOWN INDICATION
     Dosage: 30 (10MG/5MG) TABLETS, SINGLE DOSE
     Route: 048
     Dates: start: 20151112, end: 20151112
  3. TEMESTA                            /00273201/ [Suspect]
     Active Substance: LORAZEPAM
     Indication: PRODUCT USED FOR UNKNOWN INDICATION
     Dosage: 30 (2.5 MG) DF, SINGLE DOSE
     Route: 048
     Dates: start: 20151112, end: 20151112
  4. EFFEXOR [Suspect]
     Active Substance: VENLAFAXINE HYDROCHLORIDE
     Indication: PRODUCT USED FOR UNKNOWN INDICATION
     Dosage: 20 (75MG) DF, SINGLE DOSE
     Route: 048
     Dates: start: 20151112, end: 20151112
  5. MIANSERIN HYDROCHLORIDE [Suspect]
     Active Substance: MIANSERIN HYDROCHLORIDE
     Indication: PRODUCT USED FOR UNKNOWN INDICATION
     Dosage: 10 (30MG) DF, SINGLE DOSE
     Route: 048
     Dates: start: 20151112, end: 20151112
  6. NEBIVOLOL                          /01339102/ [Suspect]
     Active Substance: NEBIVOLOL
     Indication: PRODUCT USED FOR UNKNOWN INDICATION
     Dosage: UNK
     Route: 065
  7. ANAFRANIL [Suspect]
     Active Substance: CLOMIPRAMINE HYDROCHLORIDE
     Indication: PRODUCT USED FOR UNKNOWN INDICATION
     Dosage: 25 MG, UNK
     Route: 048
     Dates: start: 20151112, end: 20151112

REACTIONS (6)
  - Intentional overdose [Unknown]
  - Cardiogenic shock [Recovered/Resolved]
  - Ejection fraction decreased [Unknown]
  - Shock [Recovered/Resolved]
  - Coma scale abnormal [Unknown]
  - Acute kidney injury [Recovered/Resolved]

NARRATIVE: CASE EVENT DATE: 20151112
